FAERS Safety Report 14135601 (Version 3)
Quarter: 2018Q1

REPORT INFORMATION
  Report Type: Report from Study
  Country: US (occurrence: US)
  Receive Date: 20171027
  Receipt Date: 20180123
  Transmission Date: 20180508
  Serious: No
  Sender: FDA-Public Use
  Company Number: US-AMGEN-USASL2017122899

PATIENT
  Age: 68 Year
  Sex: Female

DRUGS (2)
  1. REPATHA [Suspect]
     Active Substance: EVOLOCUMAB
     Indication: BLOOD CHOLESTEROL INCREASED
  2. REPATHA [Suspect]
     Active Substance: EVOLOCUMAB
     Indication: HYPERCHOLESTEROLAEMIA
     Dosage: 140 MG, Q2WK
     Route: 065

REACTIONS (13)
  - Diarrhoea [Unknown]
  - Eructation [Unknown]
  - Decreased appetite [Unknown]
  - Asthenia [Unknown]
  - Back pain [Unknown]
  - Nausea [Not Recovered/Not Resolved]
  - Feeling abnormal [Unknown]
  - Back disorder [Unknown]
  - Blood pressure increased [Unknown]
  - Muscle spasms [Unknown]
  - Abdominal distension [Unknown]
  - Dizziness [Not Recovered/Not Resolved]
  - Vomiting [Unknown]

NARRATIVE: CASE EVENT DATE: 2017
